FAERS Safety Report 5538452-6 (Version None)
Quarter: 2007Q4

REPORT INFORMATION
  Report Type: 
  Country: None (occurrence: None)
  Receive Date: 20071205
  Receipt Date: 20071122
  Transmission Date: 20080405
  Serious: Yes (Other)
  Sender: FDA-Public Use
  Company Number: RENA-12347

PATIENT
  Age: 55 Year
  Sex: Male
  Weight: 85 kg

DRUGS (6)
  1. RENAGEL [Suspect]
     Indication: HYPERPHOSPHATAEMIA
     Dosage: 4.8 G DAILY; PO
     Route: 048
     Dates: start: 20050201, end: 20071108
  2. RENAGEL [Suspect]
     Indication: RENAL FAILURE
     Dosage: 4.8 G DAILY; PO
     Route: 048
     Dates: start: 20050201, end: 20071108
  3. KAYEXALATE [Concomitant]
  4. SPECIAFOLDINE [Concomitant]
  5. MOPRAL [Concomitant]
  6. TENORMIN [Concomitant]

REACTIONS (2)
  - DRUG INTERACTION [None]
  - THERAPEUTIC PRODUCT INEFFECTIVE [None]
